FAERS Safety Report 6508883-6 (Version None)
Quarter: 2009Q4

REPORT INFORMATION
  Report Type: 
  Country: None (occurrence: None)
  Receive Date: 20091221
  Receipt Date: 20090818
  Transmission Date: 20100525
  Serious: No
  Sender: FDA-Public Use
  Company Number: US-ASTRAZENECA-2009SE08780

PATIENT
  Age: 63 Year
  Sex: Female

DRUGS (2)
  1. CRESTOR [Suspect]
     Route: 048
     Dates: start: 20090817
  2. ELAVIL [Suspect]

REACTIONS (4)
  - AGITATION [None]
  - ANXIETY [None]
  - DYSPEPSIA [None]
  - NAUSEA [None]
